FAERS Safety Report 9880475 (Version 1)
Quarter: 2014Q1

REPORT INFORMATION
  Report Type: Spontaneous
  Country: FR (occurrence: FR)
  Receive Date: 20140207
  Receipt Date: 20140207
  Transmission Date: 20141002
  Serious: Yes (Other)
  Sender: FDA-Public Use
  Company Number: FR-ASTRAZENECA-2014SE08003

PATIENT
  Age: 899 Month
  Sex: Male

DRUGS (5)
  1. CRESTOR [Suspect]
     Indication: DYSLIPIDAEMIA
     Route: 048
     Dates: end: 201312
  2. INHALADED CORTICOIDS [Concomitant]
  3. INHALADED CORTICOIDS [Concomitant]
  4. OXYGENOTHERAPY [Concomitant]
  5. OXYGENOTHERAPY [Concomitant]

REACTIONS (1)
  - Pulmonary fibrosis [Not Recovered/Not Resolved]
